FAERS Safety Report 18347936 (Version 1)
Quarter: 2020Q4

REPORT INFORMATION
  Report Type: Spontaneous
  Country: US (occurrence: US)
  Receive Date: 20201006
  Receipt Date: 20201006
  Transmission Date: 20210114
  Serious: Yes (Other)
  Sender: FDA-Public Use
  Company Number: US-TEVA-2020-US-1835670

PATIENT
  Age: 76 Year
  Sex: Female

DRUGS (11)
  1. MYBETRIQ TABLET EXTENDED RELEASE 24 HOUR 25 MG [Concomitant]
     Route: 048
  2. VRAYLAR 1.5 MG [Concomitant]
     Route: 048
  3. ATORVASTATIN CALCIUM 10 MG [Concomitant]
     Route: 048
  4. LISINOPRIL 40 MG [Concomitant]
     Active Substance: LISINOPRIL
     Route: 048
  5. PRISTIQ TABLET EXTENDED RELEASE 24 HOUR 100 MG [Concomitant]
     Route: 048
  6. NABUMETONE 500 MG [Concomitant]
     Active Substance: NABUMETONE
     Route: 048
  7. SYMBICORT INHALATION AEROSOL 160-45 MCG-ACT [Concomitant]
  8. LEVOTHYROXINE SODIUM 50 MCG [Concomitant]
     Active Substance: LEVOTHYROXINE SODIUM
     Route: 048
  9. METOPROLOL TARTRATE 25 MG [Concomitant]
     Active Substance: METOPROLOL TARTRATE
     Route: 048
  10. AUSTEDO [Suspect]
     Active Substance: DEUTETRABENAZINE
     Indication: TARDIVE DYSKINESIA
     Dosage: 12 MILLIGRAM DAILY;
     Route: 065
     Dates: start: 20200924, end: 20200927
  11. LYRICA [Concomitant]
     Active Substance: PREGABALIN
     Route: 048

REACTIONS (5)
  - Pruritus [Recovered/Resolved]
  - Agitation [Recovered/Resolved]
  - Dyskinesia [Recovering/Resolving]
  - Suicidal ideation [Recovered/Resolved]
  - Restlessness [Recovering/Resolving]

NARRATIVE: CASE EVENT DATE: 20200927
